FAERS Safety Report 24304544 (Version 1)
Quarter: 2024Q3

REPORT INFORMATION
  Report Type: Other
  Country: US (occurrence: US)
  Receive Date: 20240910
  Receipt Date: 20240910
  Transmission Date: 20241016
  Serious: Yes (Hospitalization)
  Sender: SIGMA TAU
  Company Number: US-LEADIANT GMBH-2023STPI000325

PATIENT
  Age: 26 Year
  Sex: Male

DRUGS (1)
  1. MATULANE [Suspect]
     Active Substance: PROCARBAZINE HYDROCHLORIDE
     Indication: Hodgkin^s disease
     Dosage: 50 MILLIGRAMS, 4 CAPSULES ( 200MG TOTAL) DAILY ON DAYS 1 TO 7 OF A 21 DAY CYCLE
     Route: 048
     Dates: start: 20230816

REACTIONS (4)
  - Neutropenia [Unknown]
  - Pyrexia [Unknown]
  - Abdominal pain [Unknown]
  - Vomiting [Unknown]

NARRATIVE: CASE EVENT DATE: 20230825
